FAERS Safety Report 11275350 (Version 2)
Quarter: 2015Q3

REPORT INFORMATION
  Report Type: Spontaneous
  Country: US (occurrence: US)
  Receive Date: 20150716
  Receipt Date: 20150720
  Transmission Date: 20151125
  Serious: Yes (Other)
  Sender: FDA-Public Use
  Company Number: US-HOSPIRA-2936744

PATIENT

DRUGS (1)
  1. KETAMINE HYDROCHLORIDE. [Suspect]
     Active Substance: KETAMINE HYDROCHLORIDE
     Indication: DEPRESSION
     Route: 042

REACTIONS (2)
  - Anxiety [Unknown]
  - Dysphoria [Unknown]
